FAERS Safety Report 8099926 (Version 5)
Quarter: 2013Q2

REPORT INFORMATION
  Report Type: Report from Study
  Country: DE (occurrence: DE)
  Receive Date: 20110822
  Receipt Date: 20130415
  Transmission Date: 20140414
  Serious: Yes (Hospitalization)
  Sender: FDA-Public Use
  Company Number: DE-ROCHE-797576

PATIENT
  Age: 58 Year
  Sex: Male
  Weight: 127 kg

DRUGS (15)
  1. CAPECITABINE [Suspect]
     Indication: RECTAL CANCER
     Dosage: LAST DOSE PRIOR TO SAE: 01 JULY 2011.
     Route: 048
  2. OXALIPLATIN [Suspect]
     Indication: RECTAL CANCER
     Dosage: LAST DOSE PRIOR TO SAE: 06 JUNE 2011.
     Route: 042
  3. EUGLUCON [Concomitant]
     Indication: DIABETES MELLITUS
     Route: 048
  4. METFORMIN [Concomitant]
     Indication: DIABETES MELLITUS
     Route: 048
  5. CONCOR COR [Concomitant]
     Indication: HYPERTENSION
     Route: 048
  6. CYNT [Concomitant]
     Indication: HYPERTENSION
     Dosage: DOSE: 0.4
     Route: 048
  7. RAMIPRIL [Concomitant]
     Indication: HYPERTENSION
     Dosage: DRUG NAME REPORTED AS RAMIPRIL 50 MG
     Route: 048
  8. LASIX [Concomitant]
     Indication: HYPERTENSION
     Dosage: 1/2 PER DAY
     Route: 048
  9. ASS [Concomitant]
     Indication: CORONARY ARTERY DISEASE
     Route: 048
  10. ESIDRIX [Concomitant]
     Indication: HYPERTENSION
     Route: 048
  11. PANTOPRAZOLE [Concomitant]
     Indication: PROPHYLAXIS AGAINST GASTROINTESTINAL ULCER
     Route: 048
  12. SIMVASTATIN [Concomitant]
     Indication: HYPERCHOLESTEROLAEMIA
     Route: 048
  13. AMLODIPIN [Concomitant]
     Indication: HYPERTENSION
     Route: 048
  14. CEFUROXIM [Concomitant]
     Indication: INFECTION PROPHYLAXIS
     Route: 065
     Dates: start: 20110729
  15. METRONIDAZOLE [Concomitant]
     Indication: INFECTION PROPHYLAXIS
     Route: 065
     Dates: start: 20110729

REACTIONS (2)
  - Impaired healing [Recovered/Resolved]
  - Wound infection [Recovered/Resolved]
